FAERS Safety Report 8183732-1 (Version None)
Quarter: 2012Q1

REPORT INFORMATION
  Report Type: 
  Country: None (occurrence: None)
  Receive Date: 20120305
  Receipt Date: 20120224
  Transmission Date: 20120608
  Serious: Yes (Hospitalization, Other)
  Sender: FDA-Public Use
  Company Number: PHHY2011CA87419

PATIENT
  Sex: Female

DRUGS (2)
  1. AMIODARONE HCL [Interacting]
  2. SANDOSTATIN LAR [Suspect]
     Indication: NEUROENDOCRINE TUMOUR
     Dosage: 30 MG, EVERY 4 WEEKS
     Route: 030
     Dates: start: 20110829

REACTIONS (5)
  - PNEUMONIA [None]
  - BLOOD PRESSURE SYSTOLIC INCREASED [None]
  - URINARY TRACT INFECTION [None]
  - CHOLELITHIASIS [None]
  - DRUG INTERACTION [None]
